FAERS Safety Report 8765762 (Version 1)
Quarter: 2012Q4

REPORT INFORMATION
  Report Type: 
  Country: US (occurrence: US)
  Receive Date: 20120903
  Receipt Date: 20120903
  Transmission Date: 20130627
  Serious: No
  Sender: FDA-Public Use
  Company Number: US-PFIZER INC-2012214838

PATIENT
  Age: 49 Year
  Sex: Female
  Weight: 61.22 kg

DRUGS (7)
  1. LYRICA [Suspect]
     Indication: PAIN IN EXTREMITY
     Dosage: 150 mg two to three times a day
     Dates: end: 20120825
  2. LYRICA [Suspect]
     Indication: SCIATICA
  3. LYRICA [Suspect]
     Indication: FIBROMYALGIA
  4. LYRICA [Suspect]
     Indication: RHEUMATOID ARTHRITIS
  5. LYRICA [Suspect]
     Indication: MULTIPLE SCLEROSIS
  6. OXYCODONE HYDROCHLORIDE [Suspect]
     Indication: PAIN
     Dosage: unknown dose six to nine times a day
  7. SOMA [Suspect]
     Indication: MUSCLE RELAXANT THERAPY
     Dosage: UNK two to three times a day

REACTIONS (5)
  - Drug ineffective [Unknown]
  - Drug hypersensitivity [Unknown]
  - Malaise [Unknown]
  - Weight increased [Unknown]
  - Pain in extremity [Not Recovered/Not Resolved]
